FAERS Safety Report 9837090 (Version 1)
Quarter: 2014Q1

REPORT INFORMATION
  Report Type: Spontaneous
  Country: FR (occurrence: FR)
  Receive Date: 20140123
  Receipt Date: 20140123
  Transmission Date: 20141002
  Serious: Yes (Hospitalization)
  Sender: FDA-Public Use
  Company Number: FR-ROCHE-1334270

PATIENT
  Age: 88 Year
  Sex: Female

DRUGS (7)
  1. ROCEPHINE [Suspect]
     Indication: LUNG DISORDER
     Route: 058
     Dates: start: 201312, end: 20131220
  2. KALEORID LP [Concomitant]
     Indication: LUNG DISORDER
     Route: 065
  3. SPECIAFOLDINE [Concomitant]
     Indication: LUNG DISORDER
     Route: 065
  4. TARDYFERON (FRANCE) [Concomitant]
     Indication: LUNG DISORDER
     Route: 065
  5. FUROSEMIDE [Concomitant]
     Indication: LUNG DISORDER
     Route: 065
  6. PREVISCAN (FRANCE) [Concomitant]
     Indication: LUNG DISORDER
     Route: 065
  7. AMOXICILLIN/CLAVULANIC ACID [Concomitant]

REACTIONS (1)
  - Hepatitis [Recovering/Resolving]
